FAERS Safety Report 9390990 (Version 6)
Quarter: 2013Q3

REPORT INFORMATION
  Report Type: Spontaneous
  Country: US (occurrence: US)
  Receive Date: 20130709
  Receipt Date: 20130823
  Transmission Date: 20140515
  Serious: Yes (Other)
  Sender: FDA-Public Use
  Company Number: US-PFIZER INC-2013200674

PATIENT
  Sex: Female

DRUGS (3)
  1. LYRICA [Suspect]
     Dosage: 100 MG, 1X/DAY (50 MG 2 CAPSULES AT BEDTIME)
  2. LYRICA [Suspect]
     Dosage: 50 MG, UNK
  3. LYRICA [Suspect]
     Dosage: 150 MG, UNK

REACTIONS (10)
  - Incorrect dose administered [Unknown]
  - Product quality issue [Unknown]
  - Product commingling [Unknown]
  - Hallucination [Unknown]
  - Disorientation [Unknown]
  - Injury [Unknown]
  - Balance disorder [Unknown]
  - Vision blurred [Unknown]
  - Hearing impaired [Unknown]
  - Nightmare [Unknown]
